FAERS Safety Report 23304598 (Version 1)
Quarter: 2023Q4

REPORT INFORMATION
  Report Type: Spontaneous
  Country: IN (occurrence: IN)
  Receive Date: 20231218
  Receipt Date: 20231218
  Transmission Date: 20240110
  Serious: Yes (Other)
  Sender: FDA-Public Use
  Company Number: IN-Accord-392444

PATIENT
  Age: 65 Year
  Sex: Male

DRUGS (3)
  1. AMLODIPINE [Interacting]
     Active Substance: AMLODIPINE BESYLATE
     Indication: Hypertension
     Dosage: 10 MG DAILY
  2. ESCITALOPRAM [Interacting]
     Active Substance: ESCITALOPRAM OXALATE
     Indication: Insomnia
     Dosage: 10 MG DAILY
  3. HALOPERIDOL [Interacting]
     Active Substance: HALOPERIDOL
     Indication: Insomnia
     Dosage: 0.25 MG TWICE DAILY

REACTIONS (2)
  - Rabbit syndrome [Recovered/Resolved]
  - Drug interaction [Recovering/Resolving]
